FAERS Safety Report 6926222-3 (Version None)
Quarter: 2010Q3

REPORT INFORMATION
  Report Type: 
  Country: None (occurrence: None)
  Receive Date: 20100816
  Receipt Date: 20100723
  Transmission Date: 20110219
  Serious: No
  Sender: FDA-Public Use
  Company Number: US-B.I. PHARMACEUTICALS,INC./RIDGEFIELD-2010-BP-05897BP

PATIENT
  Age: 63 Year
  Sex: Female

DRUGS (2)
  1. MICARDIS HCT [Suspect]
     Indication: HYPERTENSION
     Dosage: 80MG/12.5MG
     Dates: start: 20100101, end: 20100501
  2. MICARDIS [Concomitant]
     Indication: HYPERTENSION
     Dates: start: 20091001

REACTIONS (4)
  - BRONCHITIS [None]
  - COUGH [None]
  - RESPIRATORY TRACT CONGESTION [None]
  - WHEEZING [None]
